FAERS Safety Report 8866218 (Version 5)
Quarter: 2013Q1

REPORT INFORMATION
  Report Type: Spontaneous
  Country: US (occurrence: US)
  Receive Date: 20121025
  Receipt Date: 20130304
  Transmission Date: 20140127
  Serious: Yes (Death, Life-Threatening, Hospitalization, Disabling, Other)
  Sender: FDA-Public Use
  Company Number: US-PFIZER INC-2012264988

PATIENT
  Age: 48 Year
  Sex: Female
  Weight: 53.97 kg

DRUGS (7)
  1. LYRICA [Suspect]
     Indication: SPINAL OSTEOARTHRITIS
     Dosage: 50 MG, 2X/DAY
     Route: 048
     Dates: start: 2005
  2. LYRICA [Suspect]
     Indication: INTERVERTEBRAL DISC DEGENERATION
     Dosage: 100 MG, 3X/DAY
     Route: 048
     Dates: start: 200611
  3. LYRICA [Suspect]
     Indication: NEUROPATHY PERIPHERAL
     Dosage: 300 MG DAILY
     Route: 048
     Dates: start: 200705
  4. LYRICA [Suspect]
     Indication: NEURALGIA
     Dosage: 100 MG, 3X/DAY
     Route: 048
     Dates: start: 2012, end: 201203
  5. BOTOX [Suspect]
     Dosage: UNK
     Dates: start: 2012
  6. ZOFRAN [Concomitant]
     Indication: VOMITING
     Dosage: UNK
  7. MORPHINE [Concomitant]
     Dosage: UNK, 3X/DAY

REACTIONS (20)
  - Completed suicide [Fatal]
  - Exsanguination [Fatal]
  - Laceration [Fatal]
  - Disease progression [Unknown]
  - Hypoaesthesia [Unknown]
  - Sensory loss [Recovered/Resolved]
  - Ageusia [Recovered/Resolved]
  - Feeling abnormal [Recovered/Resolved]
  - Hallucination [Unknown]
  - Torticollis [Unknown]
  - Activities of daily living impaired [Unknown]
  - Impaired driving ability [Unknown]
  - Injury [Unknown]
  - Anosmia [Recovered/Resolved]
  - Incontinence [Unknown]
  - Decreased appetite [Unknown]
  - Muscle spasms [Unknown]
  - Pain [Unknown]
  - Anxiety disorder [Unknown]
  - Drug ineffective [Unknown]
